FAERS Safety Report 14266527 (Version 2)
Quarter: 2017Q4

REPORT INFORMATION
  Report Type: Spontaneous
  Country: IT (occurrence: IT)
  Receive Date: 20171211
  Receipt Date: 20171228
  Transmission Date: 20180321
  Serious: Yes (Death)
  Sender: FDA-Public Use
  Company Number: IT-CONCORDIA PHARMACEUTICALS INC.-E2B_00008723

PATIENT
  Age: 90 Year
  Sex: Female

DRUGS (1)
  1. LANOXIN [Suspect]
     Active Substance: DIGOXIN
     Dosage: ; IN TOTAL
     Route: 048
     Dates: start: 20161018, end: 20161019

REACTIONS (1)
  - Hyperkalaemia [Fatal]

NARRATIVE: CASE EVENT DATE: 20161019
